FAERS Safety Report 5034709-6 (Version None)
Quarter: 2006Q2

REPORT INFORMATION
  Report Type: 
  Country: None (occurrence: None)
  Receive Date: 20060621
  Receipt Date: 20060614
  Transmission Date: 20061013
  Serious: Yes (Other)
  Sender: FDA-Public Use
  Company Number: T200600658

PATIENT
  Age: 21 Year
  Sex: Female
  Weight: 86.2 kg

DRUGS (3)
  1. HYDROMORPHONE HCL [Suspect]
     Indication: PAIN
     Dosage: 1-2 TAB Q 4HRS, PRN, ORAL
     Route: 048
     Dates: start: 20060612, end: 20060612
  2. VANCOMYCIN [Concomitant]
  3. DILAUDID [Concomitant]

REACTIONS (7)
  - DYSPNOEA [None]
  - ERYTHEMA OF EYELID [None]
  - EYELID OEDEMA [None]
  - GENERALISED ERYTHEMA [None]
  - PRURITUS GENERALISED [None]
  - THROAT TIGHTNESS [None]
  - URTICARIA [None]
